FAERS Safety Report 6505634-6 (Version None)
Quarter: 2009Q4

REPORT INFORMATION
  Report Type: 
  Country: None (occurrence: None)
  Receive Date: 20091218
  Receipt Date: 20091210
  Transmission Date: 20100525
  Serious: Yes (Other)
  Sender: FDA-Public Use
  Company Number: GXKR2009US13338

PATIENT
  Age: 29 Year
  Sex: Male

DRUGS (4)
  1. METHYLPREDNISOLONE [Suspect]
     Indication: MUSCULOSKELETAL STIFFNESS
     Dosage: 40 MG, UNK
     Route: 014
  2. METHYLPREDNISOLONE [Suspect]
     Indication: MUSCULOSKELETAL PAIN
  3. BUPIVACAINE [Concomitant]
     Dosage: 4 CC
  4. LIDOCAINE [Concomitant]
     Dosage: 4 CC

REACTIONS (4)
  - CHORIORETINOPATHY [None]
  - COLOUR BLINDNESS ACQUIRED [None]
  - MACULAR OEDEMA [None]
  - RASH PAPULAR [None]
